FAERS Safety Report 25346914 (Version 1)
Quarter: 2025Q2

REPORT INFORMATION
  Report Type: Spontaneous
  Country: US (occurrence: None)
  Receive Date: 20250521
  Receipt Date: 20250521
  Transmission Date: 20250716
  Serious: Yes (Death, Hospitalization)
  Sender: FDA-CTU
  Company Number: None

PATIENT
  Age: 94 Year
  Sex: Male

DRUGS (2)
  1. ENOXAPARIN [Suspect]
     Active Substance: ENOXAPARIN
     Indication: Deep vein thrombosis
     Dosage: FREQUENCY : DAILY;?
     Route: 058
     Dates: end: 20250328
  2. CLOPIDOGREL BISULFATE [Suspect]
     Active Substance: CLOPIDOGREL BISULFATE
     Indication: Coronary arterial stent insertion
     Dosage: FREQUENCY : DAILY;?
     Route: 048
     Dates: start: 20250310, end: 20250328

REACTIONS (3)
  - Cardiac arrest [None]
  - Gastrointestinal haemorrhage [None]
  - Pelvic haemorrhage [None]

NARRATIVE: CASE EVENT DATE: 20250315
